FAERS Safety Report 10748384 (Version 1)
Quarter: 2015Q1

REPORT INFORMATION
  Report Type: Spontaneous
  Country: FR (occurrence: FR)
  Receive Date: 20150129
  Receipt Date: 20150129
  Transmission Date: 20150721
  Serious: Yes (Disabling)
  Sender: FDA-Public Use
  Company Number: FR-TEVA-537234ISR

PATIENT
  Age: 66 Year
  Sex: Female

DRUGS (2)
  1. FUROSEMIDE TEVA 40MG [Suspect]
     Active Substance: FUROSEMIDE
     Dosage: 20 MILLIGRAM DAILY; IN THE MORNING
     Route: 048
  2. SPIRONOLACTONE TEVA 25MG [Suspect]
     Active Substance: SPIRONOLACTONE
     Dosage: 12.5 MILLIGRAM DAILY; IN THE MORNING
     Route: 048

REACTIONS (3)
  - Myalgia [Not Recovered/Not Resolved]
  - Hair growth abnormal [Not Recovered/Not Resolved]
  - Motor dysfunction [Not Recovered/Not Resolved]
